FAERS Safety Report 14363563 (Version 12)
Quarter: 2020Q1

REPORT INFORMATION
  Report Type: Report from Study
  Country: DE (occurrence: DE)
  Receive Date: 20180108
  Receipt Date: 20200207
  Transmission Date: 20200409
  Serious: Yes (Hospitalization, Other)
  Sender: FDA-Public Use
  Company Number: DE-BRISTOL-MYERS SQUIBB COMPANY-BMS-2017-120074

PATIENT
  Age: 76 Year
  Sex: Female

DRUGS (5)
  1. DABRAFENIB [Suspect]
     Active Substance: DABRAFENIB
     Indication: PRODUCT USED FOR UNKNOWN INDICATION
     Route: 065
  2. NIVOLUMAB [Suspect]
     Active Substance: NIVOLUMAB
     Indication: METASTATIC MALIGNANT MELANOMA
     Dosage: 171.95 MG, Q2WK
     Route: 042
     Dates: start: 20171123, end: 20171214
  3. CIPROFLOXACIN HYDROCHLORIDE MONOHYDRATE [Concomitant]
     Active Substance: CIPROFLOXACIN HYDROCHLORIDE
     Indication: PRODUCT USED FOR UNKNOWN INDICATION
     Route: 065
  4. TRAMETINIB [Suspect]
     Active Substance: TRAMETINIB
     Indication: PRODUCT USED FOR UNKNOWN INDICATION
     Route: 065
  5. GRANISETRON [Concomitant]
     Active Substance: GRANISETRON
     Indication: PRODUCT USED FOR UNKNOWN INDICATION
     Route: 065

REACTIONS (15)
  - General physical health deterioration [Recovered/Resolved]
  - Cystitis [Recovered/Resolved]
  - Pyrexia [Recovered/Resolved]
  - Hypercalcaemia [Recovered/Resolved]
  - Oedema peripheral [Recovered/Resolved]
  - Electrolyte depletion [Recovered/Resolved]
  - Weight decreased [Not Recovered/Not Resolved]
  - Immune-mediated hepatitis [Recovered/Resolved]
  - Depression [Unknown]
  - Nausea [Recovered/Resolved]
  - Decreased appetite [Recovered/Resolved]
  - Ataxia [Not Recovered/Not Resolved]
  - Malignant neoplasm progression [Not Recovered/Not Resolved]
  - Diarrhoea [Recovered/Resolved]
  - Cough [Recovered/Resolved]

NARRATIVE: CASE EVENT DATE: 20171201
